FAERS Safety Report 17216664 (Version 1)
Quarter: 2019Q4

REPORT INFORMATION
  Report Type: Spontaneous
  Country: US (occurrence: US)
  Receive Date: 20191230
  Receipt Date: 20191230
  Transmission Date: 20200122
  Serious: No
  Sender: FDA-Public Use
  Company Number: US-MATRIXX INITIATIVES, INC.-2078347

PATIENT
  Age: 52 Year
  Sex: Female
  Weight: 72.73 kg

DRUGS (2)
  1. SULINDAC. [Concomitant]
     Active Substance: SULINDAC
  2. ZICAM COLD REMEDY LOZENGES [Suspect]
     Active Substance: HOMEOPATHICS\ZINC ACETATE\ZINC GLUCONATE
     Route: 048

REACTIONS (1)
  - Ageusia [Recovered/Resolved]
